FAERS Safety Report 18012743 (Version 1)
Quarter: 2020Q3

REPORT INFORMATION
  Report Type: Spontaneous
  Country: US (occurrence: US)
  Receive Date: 20200710
  Receipt Date: 20200710
  Transmission Date: 20201103
  Serious: Yes (Other)
  Sender: FDA-Public Use
  Company Number: None

PATIENT
  Age: 66 Year
  Sex: Male
  Weight: 69.75 kg

DRUGS (5)
  1. TYLENOL [Concomitant]
     Active Substance: ACETAMINOPHEN
  2. TRAZODONE HYDROCHLORIDE. [Concomitant]
     Active Substance: TRAZODONE HYDROCHLORIDE
  3. CRESTOR [Concomitant]
     Active Substance: ROSUVASTATIN CALCIUM
  4. ADVIL [Concomitant]
     Active Substance: IBUPROFEN
  5. ASSURED INSTANT HAND SANITIZER VITAMIN E AND ALOE [Suspect]
     Active Substance: ALCOHOL
     Indication: INFECTION PROPHYLAXIS
     Dosage: ?          QUANTITY:2 8 OZ BOTTLES;?
     Route: 061
     Dates: start: 20200330, end: 20200406

REACTIONS (3)
  - Peripheral swelling [None]
  - Rash [None]
  - Scar [None]

NARRATIVE: CASE EVENT DATE: 20200413
